FAERS Safety Report 5446444-0 (Version None)
Quarter: 2007Q3

REPORT INFORMATION
  Report Type: 
  Country: None (occurrence: None)
  Receive Date: 20070907
  Receipt Date: 20070904
  Transmission Date: 20080115
  Serious: Yes (Death)
  Sender: FDA-Public Use
  Company Number: FR-ASTRAZENECA-2007CG00922

PATIENT
  Age: 93 Year
  Sex: Female
  Weight: 55 kg

DRUGS (4)
  1. ATACAND [Suspect]
     Route: 048
  2. LASIX [Suspect]
     Indication: OEDEMA PERIPHERAL
     Route: 048
  3. HEXABRIX [Suspect]
     Route: 013
     Dates: start: 20070507, end: 20070507
  4. KARDEGIC [Suspect]
     Indication: CORONARY ARTERY DISEASE
     Route: 048

REACTIONS (1)
  - RENAL FAILURE CHRONIC [None]
